FAERS Safety Report 8905879 (Version 1)
Quarter: 2012Q4

REPORT INFORMATION
  Report Type: 
  Country: US (occurrence: US)
  Receive Date: 20121111
  Receipt Date: 20121111
  Transmission Date: 20130627
  Serious: Yes (Other)
  Sender: FDA-Public Use
  Company Number: PHEH2012US022041

PATIENT
  Age: 39 Year
  Sex: Male
  Weight: 106.58 kg

DRUGS (5)
  1. GLEEVEC [Suspect]
     Dosage: 400 mg, 1 tablet every day
     Route: 048
  2. GLEEVEC [Suspect]
     Route: 048
  3. GLEEVEC [Suspect]
     Dosage: 400 mg, 1 tablet every day
     Route: 048
  4. FISH OIL [Concomitant]
  5. MULTIPLE VITAMINS [Concomitant]

REACTIONS (4)
  - Retinal detachment [Recovered/Resolved]
  - Diarrhoea [Unknown]
  - Muscle spasms [Unknown]
  - White blood cell count decreased [Unknown]
